FAERS Safety Report 15206801 (Version 4)
Quarter: 2019Q1

REPORT INFORMATION
  Report Type: Spontaneous
  Country: JP (occurrence: JP)
  Receive Date: 20180727
  Receipt Date: 20190302
  Transmission Date: 20190417
  Serious: Yes (Other)
  Sender: FDA-Public Use
  Company Number: JP-ABBVIE-18P-087-2432976-00

PATIENT
  Age: 10 Year
  Sex: Female
  Weight: 38.9 kg

DRUGS (10)
  1. CALONAL [Concomitant]
     Active Substance: ACETAMINOPHEN
     Dosage: 3 GRAM, QD
     Route: 048
     Dates: start: 20171219, end: 20180207
  2. DEPAKENE [Concomitant]
     Active Substance: VALPROIC ACID
     Dosage: 0.5 GRAM, QD
     Route: 048
     Dates: start: 20181025
  3. LEUPLIN [Suspect]
     Active Substance: LEUPROLIDE ACETATE
     Indication: PRECOCIOUS PUBERTY
     Dosage: 1.88 MILLIGRAM, Q4WEEKS
     Route: 058
     Dates: start: 20171024, end: 20180605
  4. LEUPLIN [Suspect]
     Active Substance: LEUPROLIDE ACETATE
     Dosage: 2.632 MILLIGRAM, Q4WEEKS
     Route: 058
     Dates: start: 20180626
  5. DEPAKENE-R [Concomitant]
     Active Substance: VALPROATE SODIUM
     Indication: HEADACHE
     Dosage: 300 MILLIGRAM, QD
     Route: 048
     Dates: start: 20170411, end: 20170514
  6. DEPAKENE-R [Concomitant]
     Active Substance: VALPROATE SODIUM
     Dosage: 400 MILLIGRAM, QD
     Route: 048
     Dates: start: 20170515, end: 20170611
  7. CALONAL [Concomitant]
     Active Substance: ACETAMINOPHEN
     Indication: HEADACHE
     Dosage: 1.5 GRAM, QD
     Route: 048
     Dates: start: 20160913, end: 20160928
  8. CALONAL [Concomitant]
     Active Substance: ACETAMINOPHEN
     Dosage: 600 MILLIGRAM, QD
     Route: 048
     Dates: start: 20180208
  9. DEPAKENE [Concomitant]
     Active Substance: VALPROIC ACID
     Indication: HEADACHE
     Dosage: 0.6 GRAM, BID
     Route: 048
     Dates: start: 20170612, end: 20180115
  10. CALONAL [Concomitant]
     Active Substance: ACETAMINOPHEN
     Indication: HEADACHE
     Dosage: 2 GRAM, QD
     Route: 048
     Dates: start: 20160929, end: 20171218

REACTIONS (3)
  - Lacunar infarction [Not Recovered/Not Resolved]
  - Headache [Not Recovered/Not Resolved]
  - Chronic sinusitis [Unknown]

NARRATIVE: CASE EVENT DATE: 20171217
